FAERS Safety Report 17600512 (Version 1)
Quarter: 2020Q1

REPORT INFORMATION
  Report Type: Spontaneous
  Country: BR (occurrence: BR)
  Receive Date: 20200330
  Receipt Date: 20200330
  Transmission Date: 20200409
  Serious: Yes (Hospitalization, Other)
  Sender: FDA-Public Use
  Company Number: BR-JNJFOC-20200341537

PATIENT
  Age: 31 Year
  Sex: Female

DRUGS (1)
  1. RIVAROXABAN [Suspect]
     Active Substance: RIVAROXABAN
     Indication: PLASTIC SURGERY
     Dosage: 10 MG, QD
     Route: 048
     Dates: start: 20200323

REACTIONS (2)
  - Vascular rupture [Unknown]
  - Blister [Unknown]

NARRATIVE: CASE EVENT DATE: 20200323
